FAERS Safety Report 24215561 (Version 1)
Quarter: 2024Q3

REPORT INFORMATION
  Report Type: Report from Study
  Country: US (occurrence: US)
  Receive Date: 20240816
  Receipt Date: 20240816
  Transmission Date: 20241016
  Serious: No
  Sender: ACADIA PHARMACEUTICALS
  Company Number: US-ACADIA PHARMACEUTICALS INC.-ACA-2024-PIM-003964

PATIENT
  Age: 75 Year
  Sex: Male

DRUGS (12)
  1. NUPLAZID [Suspect]
     Active Substance: PIMAVANSERIN TARTRATE
     Indication: Hallucination
     Dosage: 34 MILLIGRAM, QD
     Route: 048
     Dates: start: 20230720
  2. NUPLAZID [Suspect]
     Active Substance: PIMAVANSERIN TARTRATE
     Indication: Sleep disorder
  3. CARBIDOPA\LEVODOPA [Concomitant]
     Active Substance: CARBIDOPA\LEVODOPA
  4. DULOXETINE [Concomitant]
     Active Substance: DULOXETINE
  5. TAMSULOSIN [Concomitant]
     Active Substance: TAMSULOSIN
  6. BACLOFEN [Concomitant]
     Active Substance: BACLOFEN
  7. AMANTADINE [Concomitant]
     Active Substance: AMANTADINE
  8. DONEPEZIL [Concomitant]
     Active Substance: DONEPEZIL\DONEPEZIL HYDROCHLORIDE
  9. FINASTERIDE [Concomitant]
     Active Substance: FINASTERIDE
  10. OXYCODONE [Concomitant]
     Active Substance: OXYCODONE
  11. SENNA PLUS [SENNA ALEXANDRINA] [Concomitant]
  12. FENTANYL [Concomitant]
     Active Substance: FENTANYL\FENTANYL CITRATE

REACTIONS (3)
  - Sleep disorder [Not Recovered/Not Resolved]
  - Abnormal dreams [Not Recovered/Not Resolved]
  - Hallucination [Recovered/Resolved]

NARRATIVE: CASE EVENT DATE: 20240711
